FAERS Safety Report 18920070 (Version 1)
Quarter: 2021Q1

REPORT INFORMATION
  Report Type: Spontaneous
  Country: FR (occurrence: FR)
  Receive Date: 20210222
  Receipt Date: 20210222
  Transmission Date: 20210420
  Serious: Yes (Hospitalization)
  Sender: FDA-Public Use
  Company Number: FR-TEVA-2021-FR-1881111

PATIENT
  Age: 75 Year
  Sex: Female

DRUGS (4)
  1. ARTICAINE (CHLORHYDRATE D^) [Suspect]
     Active Substance: ARTICAINE HYDROCHLORIDE
     Indication: DENTAL CARE
     Dosage: 1DOSAGEFORM
     Route: 053
     Dates: start: 20200220, end: 20200220
  2. AMOXICILLINE [Suspect]
     Active Substance: AMOXICILLIN
     Indication: DENTAL CARE
     Dosage: 1 GRAM
     Route: 048
     Dates: start: 20200220, end: 20200220
  3. ADRENALINE (TARTRATE D^) [Suspect]
     Active Substance: EPINEPHRINE BITARTRATE
     Indication: DENTAL CARE
     Dosage: 1DOSAGEFORM
     Route: 053
     Dates: start: 20200220, end: 20200220
  4. PARACETAMOL [Suspect]
     Active Substance: ACETAMINOPHEN
     Indication: DENTAL CARE
     Dosage: 1GRAM
     Route: 048
     Dates: start: 20200220, end: 20200220

REACTIONS (1)
  - Anaphylactic shock [Recovered/Resolved]

NARRATIVE: CASE EVENT DATE: 20200220
